FAERS Safety Report 13458574 (Version 10)
Quarter: 2019Q1

REPORT INFORMATION
  Report Type: Report from Study
  Country: US (occurrence: US)
  Receive Date: 20170419
  Receipt Date: 20190329
  Transmission Date: 20190417
  Serious: No
  Sender: FDA-Public Use
  Company Number: PHHY2014US134261

PATIENT
  Age: 39 Year
  Sex: Female

DRUGS (1)
  1. GILENYA [Suspect]
     Active Substance: FINGOLIMOD HYDROCHLORIDE
     Indication: MULTIPLE SCLEROSIS
     Dosage: UNK, QD
     Route: 048

REACTIONS (24)
  - Back pain [Recovered/Resolved]
  - Blood creatinine decreased [Recovered/Resolved]
  - Peroneal nerve palsy [Unknown]
  - White matter lesion [Recovered/Resolved]
  - Musculoskeletal stiffness [Unknown]
  - Hypoaesthesia [Recovered/Resolved]
  - Joint swelling [Unknown]
  - Sleep disorder [Recovered/Resolved]
  - Arthralgia [Unknown]
  - Spondylolisthesis [Unknown]
  - Hypoaesthesia [Recovered/Resolved]
  - Micturition urgency [Recovered/Resolved]
  - Arthralgia [Unknown]
  - Synovial cyst [Unknown]
  - Dysphagia [Recovered/Resolved]
  - Fatigue [Unknown]
  - Upper limb fracture [Recovered/Resolved]
  - Urinary tract infection [Recovered/Resolved]
  - Urinary hesitation [Recovered/Resolved]
  - Hypoaesthesia [Recovered/Resolved]
  - Urinary hesitation [Recovered/Resolved]
  - Paraesthesia [Recovered/Resolved]
  - Vision blurred [Recovered/Resolved]
  - Balance disorder [Unknown]

NARRATIVE: CASE EVENT DATE: 20140703
